FAERS Safety Report 11431960 (Version 3)
Quarter: 2016Q1

REPORT INFORMATION
  Report Type: Spontaneous
  Country: IT (occurrence: IT)
  Receive Date: 20150828
  Receipt Date: 20160118
  Transmission Date: 20160525
  Serious: Yes (Death, Other)
  Sender: FDA-Public Use
  Company Number: IT-MALLINCKRODT-T201504125

PATIENT
  Age: 57 Year
  Sex: Female
  Weight: 58 kg

DRUGS (3)
  1. ADVAGRAF [Concomitant]
     Active Substance: TACROLIMUS
     Dosage: 1 MG
     Dates: start: 20150727, end: 20150813
  2. AMBISONE [Suspect]
     Active Substance: AMPHOTERICIN B
     Indication: SYSTEMIC CANDIDA
     Dosage: 180 MG, QD
     Route: 042
     Dates: start: 20150805, end: 20150813
  3. OFIRMEV [Suspect]
     Active Substance: ACETAMINOPHEN
     Indication: PAIN
     Dosage: 3 G, QD
     Route: 042
     Dates: start: 20150726, end: 20150813

REACTIONS (1)
  - Systemic inflammatory response syndrome [Fatal]

NARRATIVE: CASE EVENT DATE: 20150813
